FAERS Safety Report 5783584-0 (Version None)
Quarter: 2008Q2

REPORT INFORMATION
  Report Type: 
  Country: None (occurrence: None)
  Receive Date: 20080605
  Receipt Date: 20080319
  Transmission Date: 20081010
  Serious: No
  Sender: FDA-Public Use
  Company Number: A0716399A

PATIENT
  Age: 23 Year
  Sex: Female

DRUGS (4)
  1. ALLI [Suspect]
     Dates: end: 20080304
  2. PAXIL [Concomitant]
  3. GEODON [Concomitant]
  4. WELCHOL [Concomitant]

REACTIONS (5)
  - ANGER [None]
  - DRUG INTERACTION [None]
  - INSOMNIA [None]
  - IRRITABILITY [None]
  - RASH [None]
